FAERS Safety Report 11943444 (Version 1)
Quarter: 2016Q1

REPORT INFORMATION
  Report Type: Spontaneous
  Country: GB (occurrence: GB)
  Receive Date: 20160125
  Receipt Date: 20160125
  Transmission Date: 20160526
  Serious: Yes (Life-Threatening, Hospitalization)
  Sender: FDA-Public Use
  Company Number: GB-HOSPIRA-3142698

PATIENT
  Age: 72 Year
  Sex: Male

DRUGS (16)
  1. DOCETAXEL. [Suspect]
     Active Substance: DOCETAXEL
     Indication: LUNG ADENOCARCINOMA
     Dosage: INTENDED FOR 20 DAY COURSE
     Dates: start: 20151201, end: 20151209
  2. PARACETAMOL [Concomitant]
     Active Substance: ACETAMINOPHEN
     Indication: PRODUCT USED FOR UNKNOWN INDICATION
     Dosage: 1-2, 4 TIMES A DAY
  3. ACLIDINIUM BROMIDE [Concomitant]
     Active Substance: ACLIDINIUM BROMIDE
     Indication: PRODUCT USED FOR UNKNOWN INDICATION
     Dosage: 375 MICROGRAMS/DOSE
     Route: 055
  4. OXYNORM [Concomitant]
     Active Substance: OXYCODONE HYDROCHLORIDE
     Indication: PAIN
     Dates: start: 20141121
  5. NINTEDANIB [Suspect]
     Active Substance: NINTEDANIB
     Indication: LUNG ADENOCARCINOMA
     Dosage: CUMULATIVE DOSE: 3200 MG; INTENDED FOR 20 DAY COURSE
     Route: 048
     Dates: start: 20151201, end: 20151209
  6. DEXAMETHASONE. [Concomitant]
     Active Substance: DEXAMETHASONE
     Indication: CHEMOTHERAPY
     Dosage: PRE-CHEMOTHERAPY
  7. OXYCONTIN [Concomitant]
     Active Substance: OXYCODONE HYDROCHLORIDE
     Indication: PRODUCT USED FOR UNKNOWN INDICATION
     Dosage: 10740.8333 MG
     Dates: start: 20140620
  8. DEPO-MEDRONE [Concomitant]
     Active Substance: METHYLPREDNISOLONE
     Indication: PRODUCT USED FOR UNKNOWN INDICATION
     Dosage: INJECTION INTO RIGHT KNEE
     Dates: start: 20151012, end: 20151012
  9. SENNA                              /00142201/ [Concomitant]
     Active Substance: SENNA LEAF
     Indication: CONSTIPATION
     Dosage: 1 OR 2 AT NIGHT
  10. FOSTAIR [Concomitant]
     Active Substance: BECLOMETHASONE\FORMOTEROL
     Indication: PRODUCT USED FOR UNKNOWN INDICATION
     Dosage: PUFFS. 100 MICROGRAMS/DOSE/6 MICROGRAMS/DOSE
     Route: 055
  11. LANSOPRAZOLE. [Concomitant]
     Active Substance: LANSOPRAZOLE
     Indication: PRODUCT USED FOR UNKNOWN INDICATION
  12. SALINE                             /00075401/ [Concomitant]
     Active Substance: SODIUM CHLORIDE
     Indication: PRODUCT USED FOR UNKNOWN INDICATION
  13. DOXYCYCLINE. [Concomitant]
     Active Substance: DOXYCYCLINE
     Indication: PRODUCT USED FOR UNKNOWN INDICATION
     Dosage: TWO TO BE TAKEN ON THE FIRST DAY THEN ONE TO BE TAKEN EACH DAY
     Dates: start: 20151012
  14. SIMPLE LINCTUS [Concomitant]
     Active Substance: AMARANTH\CHLOROFORM\CITRIC ACID MONOHYDRATE\PIMPINELLA ANISUM WHOLE
     Indication: PRODUCT USED FOR UNKNOWN INDICATION
     Dosage: 645 ML, SUGAR FREE
     Dates: start: 20151027
  15. SIMVASTATIN. [Concomitant]
     Active Substance: SIMVASTATIN
     Indication: PRODUCT USED FOR UNKNOWN INDICATION
     Dosage: AT NIGHT
  16. VENTOLIN [Concomitant]
     Active Substance: ALBUTEROL SULFATE
     Indication: PRODUCT USED FOR UNKNOWN INDICATION
     Dosage: 200 MICROGRAMS/DOSE ACUHALER. ONE DOSE UP TO FOUR TIMES A DAY-ALSO USES A EASYHALER
     Route: 055

REACTIONS (9)
  - Malaise [Unknown]
  - Hiccups [Unknown]
  - Neutrophil count decreased [Recovering/Resolving]
  - Lung consolidation [Unknown]
  - Lethargy [Unknown]
  - Neutropenic sepsis [Recovered/Resolved]
  - Mouth ulceration [Recovering/Resolving]
  - Pleural effusion [Unknown]
  - Diarrhoea [Recovered/Resolved]

NARRATIVE: CASE EVENT DATE: 20151209
